FAERS Safety Report 17640766 (Version 2)
Quarter: 2021Q4

REPORT INFORMATION
  Report Type: Spontaneous
  Country: TR (occurrence: TR)
  Receive Date: 20200407
  Receipt Date: 20211106
  Transmission Date: 20220303
  Serious: Yes (Other)
  Sender: FDA-Public Use
  Company Number: TR-NOVARTISPH-PHHY2019TR126610

PATIENT
  Age: 19 Year
  Sex: Female

DRUGS (2)
  1. PIPERACILLIN AND TAZOBACTAM [Suspect]
     Active Substance: PIPERACILLIN SODIUM\TAZOBACTAM SODIUM
     Indication: Psoas abscess
     Dosage: 4.5 G, TID
     Route: 065
  2. MEROPENEM [Suspect]
     Active Substance: MEROPENEM
     Indication: Psoas abscess
     Dosage: 3X1 G/DAY
     Route: 065

REACTIONS (3)
  - Hydronephrosis [Unknown]
  - Drug resistance [Unknown]
  - Maternal exposure during pregnancy [Unknown]
